FAERS Safety Report 14196758 (Version 2)
Quarter: 2017Q4

REPORT INFORMATION
  Report Type: Spontaneous
  Country: CN (occurrence: CN)
  Receive Date: 20171116
  Receipt Date: 20171228
  Transmission Date: 20180321
  Serious: Yes (Other)
  Sender: FDA-Public Use
  Company Number: CN-GLAXOSMITHKLINE-CN2017GSK173851

PATIENT
  Age: 6 Year
  Sex: Female

DRUGS (5)
  1. EBASTINE TABLET [Suspect]
     Active Substance: EBASTINE
     Indication: URTICARIA
     Dosage: 0.5 DF, UNK
     Route: 051
     Dates: start: 201709
  2. EBASTINE TABLET [Suspect]
     Active Substance: EBASTINE
     Indication: ANAPHYLAXIS TREATMENT
     Dosage: 0.5 DF, TABLET, ONE EIGHTH OF HALF A TABLET
     Route: 051
  3. SERETIDE [Suspect]
     Active Substance: FLUTICASONE PROPIONATE\SALMETEROL XINAFOATE
     Indication: ASTHMA
     Dosage: 1 PUFF(S), UNK
     Route: 055
     Dates: start: 201709
  4. SERETIDE [Suspect]
     Active Substance: FLUTICASONE PROPIONATE\SALMETEROL XINAFOATE
     Dosage: 1 PUFF(S), QD
     Route: 055
  5. LORATADINE CAPSULES [Suspect]
     Active Substance: LORATADINE
     Indication: URTICARIA
     Dosage: UNK
     Route: 048
     Dates: start: 201709

REACTIONS (9)
  - Condition aggravated [Recovered/Resolved]
  - Dyspnoea [Unknown]
  - Nasal obstruction [Not Recovered/Not Resolved]
  - Faecaloma [Unknown]
  - Product use issue [Unknown]
  - Dyspepsia [Not Recovered/Not Resolved]
  - Dysphonia [Recovering/Resolving]
  - Nasopharyngitis [Unknown]
  - Haematochezia [Recovering/Resolving]
